FAERS Safety Report 5935612-7 (Version None)
Quarter: 2008Q4

REPORT INFORMATION
  Report Type: 
  Country: None (occurrence: None)
  Receive Date: 20081030
  Receipt Date: 20081027
  Transmission Date: 20090506
  Serious: Yes (Hospitalization)
  Sender: FDA-Public Use
  Company Number: B0544062A

PATIENT
  Age: 41 Year
  Sex: Male

DRUGS (2)
  1. ELONTRIL [Suspect]
     Indication: DEPRESSION
     Dosage: 9G PER DAY
     Route: 048
     Dates: end: 20081015
  2. VENLAFAXINE HCL [Suspect]
     Indication: DEPRESSION
     Dosage: 6G PER DAY
     Route: 048
     Dates: end: 20081015

REACTIONS (9)
  - CONFUSIONAL STATE [None]
  - CONVULSION [None]
  - DEPRESSED LEVEL OF CONSCIOUSNESS [None]
  - INTENTIONAL OVERDOSE [None]
  - NYSTAGMUS [None]
  - RHABDOMYOLYSIS [None]
  - SEROTONIN SYNDROME [None]
  - STATUS EPILEPTICUS [None]
  - TREMOR [None]
